FAERS Safety Report 6197959-1 (Version None)
Quarter: 2009Q2

REPORT INFORMATION
  Report Type: 
  Country: None (occurrence: None)
  Receive Date: 20090521
  Receipt Date: 20090511
  Transmission Date: 20091009
  Serious: Yes (Hospitalization)
  Sender: FDA-Public Use
  Company Number: B0574268A

PATIENT
  Age: 67 Year
  Sex: Female
  Weight: 61.9 kg

DRUGS (2)
  1. FLUTIDE [Suspect]
     Route: 055
  2. THEOPHYLLINE [Concomitant]
     Route: 065

REACTIONS (20)
  - ALLERGIC GRANULOMATOUS ANGIITIS [None]
  - ARTHRALGIA [None]
  - BLOOD IMMUNOGLOBULIN E INCREASED [None]
  - BLOOD URINE PRESENT [None]
  - BRONCHIAL WALL THICKENING [None]
  - BRONCHIECTASIS [None]
  - C-REACTIVE PROTEIN INCREASED [None]
  - EOSINOPHIL COUNT INCREASED [None]
  - FLUID RETENTION [None]
  - HIATUS HERNIA [None]
  - HYPERTROPHY [None]
  - MONONEUROPATHY MULTIPLEX [None]
  - MYALGIA [None]
  - OEDEMA PERIPHERAL [None]
  - PAIN IN EXTREMITY [None]
  - PROTEIN URINE PRESENT [None]
  - RHEUMATOID FACTOR POSITIVE [None]
  - VASCULITIS [None]
  - WEIGHT DECREASED [None]
  - WHITE BLOOD CELL COUNT INCREASED [None]
